FAERS Safety Report 19096702 (Version 7)
Quarter: 2021Q2

REPORT INFORMATION
  Report Type: Spontaneous
  Country: PL (occurrence: PL)
  Receive Date: 20210406
  Receipt Date: 20210430
  Transmission Date: 20210717
  Serious: Yes (Hospitalization, Other)
  Sender: FDA-Public Use
  Company Number: PL-PFIZER INC-2021282930

PATIENT
  Age: 70 Year
  Sex: Male

DRUGS (10)
  1. CLOPIDOGREL BISULFATE. [Suspect]
     Active Substance: CLOPIDOGREL BISULFATE
     Dosage: 75 MILLIGRAM, QD
  2. CLOPIDOGREL BISULFATE. [Suspect]
     Active Substance: CLOPIDOGREL BISULFATE
     Dosage: 600 MILLIGRAM
  3. BISOPROLOL/BISOPROLOL FUMARATE [Suspect]
     Active Substance: BISOPROLOL FUMARATE
     Dosage: 2.5 MILLIGRAM, QD
     Route: 065
  4. RAMIPRIL. [Suspect]
     Active Substance: RAMIPRIL
     Dosage: 2.5 MILLIGRAM, QD
     Route: 065
  5. CEFTAZIDIME. [Concomitant]
     Active Substance: CEFTAZIDIME
     Dosage: UNK
  6. LACIDIPINE [Suspect]
     Active Substance: LACIDIPINE
     Dosage: UNK
  7. ACETYLSALICYLIC ACID [Suspect]
     Active Substance: ASPIRIN
     Dosage: 75 MILLIGRAM, QD
     Route: 065
  8. PANTOPRAZOLE [Suspect]
     Active Substance: PANTOPRAZOLE
     Dosage: 20 MILLIGRAM, QD
     Route: 065
  9. ROSUVASTATIN. [Suspect]
     Active Substance: ROSUVASTATIN
     Dosage: 40 MILLIGRAM, QD
     Route: 065
  10. TICAGRELOR. [Suspect]
     Active Substance: TICAGRELOR
     Dosage: 90 MG, 2X PER DAY
     Route: 065

REACTIONS (7)
  - Diarrhoea [Recovered/Resolved]
  - Rhabdomyolysis [Recovering/Resolving]
  - Gastrointestinal haemorrhage [Unknown]
  - Procalcitonin increased [Unknown]
  - Clostridium difficile infection [Recovered/Resolved]
  - Melaena [Unknown]
  - Anuria [Unknown]
